FAERS Safety Report 14107326 (Version 1)
Quarter: 2017Q4

REPORT INFORMATION
  Report Type: Spontaneous
  Country: US (occurrence: None)
  Receive Date: 20171018
  Receipt Date: 20171018
  Transmission Date: 20180321
  Serious: No
  Sender: FDA-Public Use
  Company Number: None

PATIENT
  Age: 70 Year
  Sex: Female

DRUGS (1)
  1. LETAIRIS [Suspect]
     Active Substance: AMBRISENTAN
     Indication: PULMONARY EMBOLISM
     Route: 048
     Dates: start: 20170923, end: 20171018

REACTIONS (3)
  - Oedema peripheral [None]
  - Dyspnoea [None]
  - Localised oedema [None]

NARRATIVE: CASE EVENT DATE: 20171014
